FAERS Safety Report 12342123 (Version 1)
Quarter: 2016Q2

REPORT INFORMATION
  Report Type: Spontaneous
  Country: US (occurrence: US)
  Receive Date: 20160506
  Receipt Date: 20160506
  Transmission Date: 20160815
  Serious: No
  Sender: FDA-Public Use
  Company Number: US-ANACOR-2016ANA00071

PATIENT
  Age: 67 Year
  Sex: Male
  Weight: 106.58 kg

DRUGS (12)
  1. MULTIVITAMIN [Concomitant]
     Active Substance: VITAMINS
     Dosage: UNK, 1X/DAY
  2. VITAMIN D [Concomitant]
     Active Substance: CHOLECALCIFEROL
     Dosage: 2000 IU, 1X/DAY
  3. METHOTREXATE [Concomitant]
     Active Substance: METHOTREXATE
     Dosage: 15 MG, 1X/WEEK
     Dates: start: 2011
  4. UNSPECIFIED STOOL SOFTENER [Concomitant]
  5. ADVAIR HFA [Concomitant]
     Active Substance: FLUTICASONE PROPIONATE\SALMETEROL XINAFOATE
     Dosage: 150 ?G, 1X/DAY
  6. AMLODIPINE [Concomitant]
     Active Substance: AMLODIPINE BESYLATE
     Dosage: UNK, 1X/DAY
     Dates: start: 2004
  7. ASPIRIN. [Concomitant]
     Active Substance: ASPIRIN
     Dosage: UNK, 1X/DAY
  8. KERYDIN [Suspect]
     Active Substance: TAVABOROLE
     Indication: FUNGAL INFECTION
     Dosage: UNK UNK, 1X/DAY
     Route: 061
     Dates: start: 20151231
  9. ALBUTEROL. [Concomitant]
     Active Substance: ALBUTEROL
     Dosage: UNK, AS NEEDED
  10. FOLIC ACID. [Concomitant]
     Active Substance: FOLIC ACID
  11. UNSPECIFIED VITAMIN WITH BIOTIN [Concomitant]
     Dosage: UNK, 1X/DAY
  12. ALEVE [Concomitant]
     Active Substance: NAPROXEN SODIUM
     Dosage: 3 UNK, 1X/DAY

REACTIONS (3)
  - Alanine aminotransferase increased [Recovered/Resolved]
  - Laboratory test interference [Recovered/Resolved]
  - Aspartate aminotransferase increased [Recovered/Resolved]

NARRATIVE: CASE EVENT DATE: 201602
